FAERS Safety Report 8955284 (Version 1)
Quarter: 2012Q4

REPORT INFORMATION
  Report Type: 
  Country: CA (occurrence: CA)
  Receive Date: 20121207
  Receipt Date: 20121207
  Transmission Date: 20130627
  Serious: Yes (Other)
  Sender: FDA-Public Use
  Company Number: CA-ROCHE-GNE293974

PATIENT
  Sex: Female
  Weight: 86.26 kg

DRUGS (11)
  1. XOLAIR [Suspect]
     Indication: ASTHMA
     Dosage: 150 mg, 1/Month
     Route: 058
     Dates: start: 20090610
  2. XOLAIR [Suspect]
     Dosage: 150 mg, 1/Month
     Route: 065
     Dates: start: 20090708
  3. XOLAIR [Suspect]
     Dosage: 150 mg, 1/Month
     Route: 065
     Dates: start: 20090805
  4. XOLAIR [Suspect]
     Dosage: 150 mg, 1/Month
     Route: 058
     Dates: start: 20091028
  5. XOLAIR [Suspect]
     Dosage: 150 mg, 1/Month
     Route: 058
     Dates: start: 20091126
  6. XOLAIR [Suspect]
     Dosage: 150 mg, 1/Month
     Route: 058
     Dates: start: 20100524
  7. SPIRIVA [Concomitant]
  8. SYMBICORT [Concomitant]
  9. SINGULAIR [Concomitant]
     Indication: PRODUCT USED FOR UNKNOWN INDICATION
  10. ALVESCO [Concomitant]
  11. VENTOLIN [Concomitant]

REACTIONS (7)
  - Pneumonia [Unknown]
  - Insomnia [Unknown]
  - Paraesthesia [Unknown]
  - Injection site haematoma [Unknown]
  - Ear discomfort [Unknown]
  - Arthralgia [Unknown]
  - Depressed mood [Unknown]
